FAERS Safety Report 8084404 (Version 3)
Quarter: 2013Q4

REPORT INFORMATION
  Report Type: Spontaneous
  Country: US (occurrence: US)
  Receive Date: 20110810
  Receipt Date: 20131205
  Transmission Date: 20140711
  Serious: Yes (Hospitalization, Other)
  Sender: FDA-Public Use
  Company Number: US-ROCHE-794541

PATIENT
  Age: 43 Year
  Sex: Male
  Weight: 106.69 kg

DRUGS (1)
  1. ACCUTANE [Suspect]
     Indication: ACNE
     Route: 048
     Dates: start: 19860528, end: 19870131

REACTIONS (13)
  - Large intestine perforation [Unknown]
  - Large intestine perforation [Unknown]
  - Peritonitis [Unknown]
  - Panic disorder [Unknown]
  - Hypercholesterolaemia [Unknown]
  - Crohn^s disease [Unknown]
  - Inflammatory bowel disease [Unknown]
  - Intestinal haemorrhage [Unknown]
  - Large intestine polyp [Unknown]
  - Irritable bowel syndrome [Unknown]
  - Dry eye [Unknown]
  - Lip dry [Unknown]
  - Arthralgia [Unknown]
